FAERS Safety Report 8367911-6 (Version None)
Quarter: 2012Q2

REPORT INFORMATION
  Report Type: 
  Country: None (occurrence: None)
  Receive Date: 20120517
  Receipt Date: 20120508
  Transmission Date: 20120825
  Serious: Yes (Other)
  Sender: FDA-Public Use
  Company Number: JP-VERTEX PHARMACEUTICALS INC.-AE-2012-007189

PATIENT
  Age: 61 Year
  Sex: Female

DRUGS (8)
  1. PEGASYS [Concomitant]
     Indication: HEPATITIS C
     Route: 058
     Dates: start: 20120307
  2. TELAVIC (TELAPREVIR) [Suspect]
     Route: 048
     Dates: start: 20120426, end: 20120429
  3. TELAVIC (TELAPREVIR) [Suspect]
     Route: 048
     Dates: start: 20120420, end: 20120425
  4. RIBAVIRIN [Concomitant]
     Route: 048
     Dates: start: 20120413
  5. URSO 250 [Concomitant]
     Route: 048
  6. LAENNEC [Concomitant]
     Dates: start: 20120314
  7. TELAVIC (TELAPREVIR) [Suspect]
     Indication: HEPATITIS C
     Route: 048
     Dates: start: 20120307, end: 20120419
  8. RIBAVIRIN [Concomitant]
     Indication: HEPATITIS C
     Route: 048
     Dates: start: 20120307, end: 20120412

REACTIONS (1)
  - ERYTHEMA MULTIFORME [None]
